FAERS Safety Report 14324550 (Version 10)
Quarter: 2022Q1

REPORT INFORMATION
  Report Type: Spontaneous
  Country: GR (occurrence: GR)
  Receive Date: 20171226
  Receipt Date: 20220129
  Transmission Date: 20220423
  Serious: Yes (Life-Threatening, Hospitalization, Disabling, Other)
  Sender: FDA-Public Use
  Company Number: GR-LEO PHARMA-305507

PATIENT
  Age: 79 Year
  Sex: Female

DRUGS (7)
  1. ATORVASTATIN [Interacting]
     Active Substance: ATORVASTATIN
     Indication: Dyslipidaemia
     Dosage: 20 MILLIGRAM, QD, 20 MG, QD, 20 MILLIGRAM DAILY
     Route: 048
  2. FUCIDIN [Interacting]
     Active Substance: FUSIDATE SODIUM
     Indication: Skin bacterial infection
     Dosage: 1000 MILLIGRAM, QD, 1000 MG, QD, (1000 MILLIGRAM DAILY)
     Route: 065
  3. FUCIDIN [Interacting]
     Active Substance: FUSIDATE SODIUM
     Indication: Dermatitis
     Dosage: 250 MG, QD
     Route: 048
  4. FUCIDIN [Interacting]
     Active Substance: FUSIDATE SODIUM
     Dosage: 250 MILLIGRAM, Q4D
     Route: 065
  5. CLINDAMYCIN [Concomitant]
     Active Substance: CLINDAMYCIN
     Indication: Skin bacterial infection
     Dosage: 300 MG, 3X/DAY
  6. CLINDAMYCIN [Concomitant]
     Active Substance: CLINDAMYCIN
     Indication: Dermatitis
     Dosage: 900 MILLIGRAM, QD, 900 MILLIGRAM DAILY; THREE TIMES DAILY
     Route: 065
  7. CLINDAMYCIN [Concomitant]
     Active Substance: CLINDAMYCIN
     Indication: Staphylococcal infection
     Dosage: 300 MILLIGRAM, QD
     Route: 048

REACTIONS (10)
  - Gait disturbance [Recovering/Resolving]
  - Rhabdomyolysis [Recovered/Resolved]
  - Drug interaction [Recovered/Resolved]
  - Myoglobinuria [Recovering/Resolving]
  - Muscular weakness [Recovering/Resolving]
  - Myalgia [Recovering/Resolving]
  - Acute kidney injury [Unknown]
  - Dysstasia [Recovering/Resolving]
  - Renal impairment [Recovering/Resolving]
  - Labelled drug-drug interaction issue [Recovering/Resolving]

NARRATIVE: CASE EVENT DATE: 20160921
